FAERS Safety Report 13504688 (Version 2)
Quarter: 2017Q2

REPORT INFORMATION
  Report Type: Report from Study
  Country: CN (occurrence: CN)
  Receive Date: 20170502
  Receipt Date: 20170517
  Transmission Date: 20170830
  Serious: Yes (Other)
  Sender: FDA-Public Use
  Company Number: PHHY2017CN059985

PATIENT
  Age: 30 Year
  Sex: Male

DRUGS (6)
  1. NIFEDIPINE. [Suspect]
     Active Substance: NIFEDIPINE
     Indication: HYPERTENSION
     Dosage: 30 MG, QD
     Route: 065
  2. NIFEDIPINE. [Suspect]
     Active Substance: NIFEDIPINE
     Dosage: 30 MG, BID
     Route: 065
  3. NIFEDIPINE. [Suspect]
     Active Substance: NIFEDIPINE
     Dosage: 30 MG, QD
     Route: 065
  4. DIOVAN [Suspect]
     Active Substance: VALSARTAN
     Dosage: 160 MG, QN
     Route: 065
  5. DIOVAN [Suspect]
     Active Substance: VALSARTAN
     Indication: HYPERTENSION
     Dosage: 80 MG, QD
     Route: 065
  6. TERAZOSIN [Suspect]
     Active Substance: TERAZOSIN\TERAZOSIN HYDROCHLORIDE
     Indication: HYPERTENSION
     Dosage: 2 MG, QN
     Route: 065

REACTIONS (16)
  - Headache [Unknown]
  - Acute kidney injury [Unknown]
  - Occult blood positive [Unknown]
  - Blood triglycerides increased [Unknown]
  - Hypertensive emergency [Recovering/Resolving]
  - Renal ischaemia [Unknown]
  - Renal failure [Unknown]
  - Blood cholesterol increased [Unknown]
  - Left ventricular hypertrophy [Unknown]
  - Hypokalaemia [Unknown]
  - Visual acuity reduced [Unknown]
  - Glomerulonephritis chronic [Unknown]
  - Blood pressure increased [Recovering/Resolving]
  - Papilloedema [Unknown]
  - Lacunar infarction [Unknown]
  - Fatigue [Unknown]
